FAERS Safety Report 7883612-2 (Version None)
Quarter: 2011Q4

REPORT INFORMATION
  Report Type: 
  Country: None (occurrence: None)
  Receive Date: 20111102
  Receipt Date: 20111026
  Transmission Date: 20120403
  Serious: Yes (Life-Threatening, Hospitalization)
  Sender: FDA-Public Use
  Company Number: US-BRISTOL-MYERS SQUIBB COMPANY-16197956

PATIENT

DRUGS (4)
  1. BARACLUDE [Suspect]
     Indication: HEPATITIS B
  2. EFAVIRENZ [Concomitant]
  3. REYATAZ [Suspect]
     Indication: HIV INFECTION
  4. ISENTRESS [Concomitant]

REACTIONS (1)
  - PNEUMONIA [None]
